FAERS Safety Report 6122663-5 (Version None)
Quarter: 2009Q1

REPORT INFORMATION
  Report Type: 
  Country: None (occurrence: None)
  Receive Date: 20090318
  Receipt Date: 20090311
  Transmission Date: 20090719
  Serious: Yes (Hospitalization)
  Sender: FDA-Public Use
  Company Number: US-BAYER-200821708NA

PATIENT
  Age: 79 Year
  Sex: Male

DRUGS (8)
  1. NEXAVAR [Suspect]
     Indication: HEPATIC NEOPLASM MALIGNANT
     Dosage: TOTAL DAILY DOSE: 800 MG  UNIT DOSE: 200 MG
     Route: 048
     Dates: start: 20080301, end: 20080501
  2. COUMADIN [Concomitant]
  3. LIPITOR [Concomitant]
     Dosage: TOTAL DAILY DOSE: 10 MG
  4. CARTIA XT [Concomitant]
     Dosage: TOTAL DAILY DOSE: 180 MG
  5. PROTONIX [Concomitant]
     Dosage: TOTAL DAILY DOSE: 40 MG
  6. ISOSORBIDE [Concomitant]
  7. LISINOPRIL [Concomitant]
     Dosage: TOTAL DAILY DOSE: 10 MG
  8. ALLOPURINOL [Concomitant]
     Dosage: TOTAL DAILY DOSE: 300 MG

REACTIONS (1)
  - EPISTAXIS [None]
